FAERS Safety Report 10948573 (Version 1)
Quarter: 2015Q1

REPORT INFORMATION
  Report Type: Spontaneous
  Country: US (occurrence: None)
  Receive Date: 20150220
  Receipt Date: 20150220
  Transmission Date: 20150721
  Serious: No
  Sender: FDA-Public Use
  Company Number: 1000071909

PATIENT
  Age: 80 Year
  Sex: Female

DRUGS (5)
  1. POTASSIUM [Concomitant]
     Active Substance: POTASSIUM
  2. TUDORZA PRESSAIR [Suspect]
     Active Substance: ACLIDINIUM BROMIDE
     Indication: CHRONIC OBSTRUCTIVE PULMONARY DISEASE
     Dosage: 800 MCG (400 MCG, 2 IN 1 D), RESPIRTORY (INHALATION)
     Route: 055
     Dates: start: 201410
  3. PRIMIDONE. [Concomitant]
     Active Substance: PRIMIDONE
  4. BREO (FLUTICASONE FUROATE, VILANTEROL) [Concomitant]
  5. DILANTIN [Concomitant]
     Active Substance: PHENYTOIN

REACTIONS (2)
  - Throat irritation [None]
  - Dyspepsia [None]

NARRATIVE: CASE EVENT DATE: 20141026
